FAERS Safety Report 4489718-2 (Version None)
Quarter: 2004Q4

REPORT INFORMATION
  Report Type: 
  Country: None (occurrence: None)
  Receive Date: 20041101
  Receipt Date: 20041022
  Transmission Date: 20050328
  Serious: Yes (Hospitalization)
  Sender: FDA-Public Use
  Company Number: JP-MERCK-0410USA03913

PATIENT
  Age: 68 Year
  Sex: Female

DRUGS (10)
  1. PEPCID [Suspect]
     Route: 048
     Dates: start: 20041006, end: 20041014
  2. OMEPRAL [Suspect]
     Route: 042
     Dates: start: 20041013, end: 20041014
  3. LANSOPRAZOLE [Suspect]
     Route: 048
     Dates: start: 20041013
  4. CARVEDILOL [Concomitant]
     Route: 065
  5. PREDONINE [Concomitant]
     Route: 048
  6. DIOVAN [Concomitant]
     Route: 048
  7. AZULENE SULFONATE SODIUM [Concomitant]
     Route: 048
  8. THROMBIN [Concomitant]
     Route: 065
  9. GASTROM [Concomitant]
     Route: 065
  10. CILOSTAZOL [Concomitant]
     Route: 065

REACTIONS (1)
  - ACTIVATED PARTIAL THROMBOPLASTIN TIME PROLONGED [None]
